FAERS Safety Report 12604358 (Version 16)
Quarter: 2016Q4

REPORT INFORMATION
  Report Type: Report from Study
  Country: None (occurrence: IL)
  Receive Date: 20160728
  Receipt Date: 20161214
  Transmission Date: 20170207
  Serious: Yes (Life-Threatening, Hospitalization, Other)
  Sender: FDA-Public Use
  Company Number: IL-ABBVIE-16P-082-1659900-00

PATIENT
  Sex: Male

DRUGS (15)
  1. MIRO [Concomitant]
     Indication: PRODUCT USED FOR UNKNOWN INDICATION
     Dosage: AT NIGHT
     Route: 048
  2. CARVEDILOL. [Concomitant]
     Active Substance: CARVEDILOL
     Indication: PRODUCT USED FOR UNKNOWN INDICATION
     Route: 048
  3. FUSID [Concomitant]
     Active Substance: FUROSEMIDE
     Indication: PRODUCT USED FOR UNKNOWN INDICATION
     Dosage: 1/1 IN THE MORNING
     Route: 048
  4. DUODOPA [Suspect]
     Active Substance: CARBIDOPA\LEVODOPA
     Dosage: CURRENT MORNING- 11.5 ML/HOUR, CONSTANT RATE- 4.2 ML/HOUR, ED-2 ML/HOUR
     Route: 050
     Dates: start: 20160322
  5. REQUIP MODUTAB [Concomitant]
     Indication: PRODUCT USED FOR UNKNOWN INDICATION
     Route: 048
  6. ZANDOPA [Concomitant]
     Indication: PARKINSON^S DISEASE
     Dates: start: 2007
  7. OMEPRADEX [Concomitant]
     Active Substance: OMEPRAZOLE
     Indication: PRODUCT USED FOR UNKNOWN INDICATION
     Dosage: 1/1 IN THE MORNING
     Route: 048
  8. DUODART [Concomitant]
     Active Substance: DUTASTERIDE\TAMSULOSIN
     Indication: PRODUCT USED FOR UNKNOWN INDICATION
     Dosage: 1/1 DAY AT 6 AM OR BREAKFAST
     Route: 048
  9. MAGNOX DUMMY STANDARD [Concomitant]
     Indication: PRODUCT USED FOR UNKNOWN INDICATION
     Dosage: 2/1 DAY IN THE MORNING
     Route: 048
  10. DUODOPA [Suspect]
     Active Substance: CARBIDOPA\LEVODOPA
     Indication: PARKINSON^S DISEASE
     Route: 050
  11. ENALAPRIL [Concomitant]
     Active Substance: ENALAPRIL
     Indication: PRODUCT USED FOR UNKNOWN INDICATION
     Dates: end: 201607
  12. ENALAPRIL [Concomitant]
     Active Substance: ENALAPRIL
     Dosage: 1/1 IN THE MORNING
     Route: 048
  13. CLEXANE [Concomitant]
     Active Substance: ENOXAPARIN SODIUM
     Indication: ANTICOAGULANT THERAPY
     Route: 058
  14. DUODOPA [Suspect]
     Active Substance: CARBIDOPA\LEVODOPA
     Dosage: DURATION: 3 MONTHS, DOSE DECREASED
     Route: 050
  15. DUODOPA [Suspect]
     Active Substance: CARBIDOPA\LEVODOPA
     Dosage: DURATION 0.5 YEAR
     Route: 050

REACTIONS (57)
  - Blood pressure decreased [Unknown]
  - Dyspnoea [Unknown]
  - PCO2 increased [Not Recovered/Not Resolved]
  - Aggression [Unknown]
  - Paranoia [Unknown]
  - Ascites [Unknown]
  - Loss of consciousness [Unknown]
  - Asthenia [Recovering/Resolving]
  - Diarrhoea [Unknown]
  - Herpes virus infection [Not Recovered/Not Resolved]
  - Suspiciousness [Unknown]
  - Cough [Unknown]
  - Productive cough [Unknown]
  - Status epilepticus [Unknown]
  - Hypoventilation [Unknown]
  - Pyrexia [Unknown]
  - Electroencephalogram abnormal [Unknown]
  - Hypomagnesaemia [Recovered/Resolved]
  - Leukocytosis [Unknown]
  - Encephalitis [Unknown]
  - Dilatation atrial [Unknown]
  - Hallucination [Not Recovered/Not Resolved]
  - Infection [Unknown]
  - Wheezing [Not Recovered/Not Resolved]
  - Fatigue [Not Recovered/Not Resolved]
  - Depression [Unknown]
  - Encephalomyelitis [Unknown]
  - Anaemia [Unknown]
  - Cerebrovascular accident [Unknown]
  - Cardiac disorder [Not Recovered/Not Resolved]
  - Seizure [Not Recovered/Not Resolved]
  - Petit mal epilepsy [Unknown]
  - Pneumonia [Unknown]
  - Vitamin B6 deficiency [Unknown]
  - Lung disorder [Unknown]
  - Pulmonary oedema [Not Recovered/Not Resolved]
  - Respiratory disorder [Unknown]
  - Loss of consciousness [Unknown]
  - Dyskinesia [Not Recovered/Not Resolved]
  - Rash [Not Recovered/Not Resolved]
  - Enterococcal infection [Unknown]
  - Aspiration [Unknown]
  - Loss of consciousness [Recovered/Resolved]
  - Hypophosphataemia [Unknown]
  - Respiratory failure [Unknown]
  - Urinary tract infection [Unknown]
  - Cyst [Unknown]
  - Dyspnoea [Recovering/Resolving]
  - Tremor [Unknown]
  - Hypotension [Unknown]
  - Irritability [Unknown]
  - Haemodynamic instability [Unknown]
  - Muscular weakness [Unknown]
  - Syncope [Unknown]
  - Hypoxia [Unknown]
  - Confusional state [Unknown]
  - Arachnoid cyst [Unknown]

NARRATIVE: CASE EVENT DATE: 20160328
